FAERS Safety Report 20816162 (Version 1)
Quarter: 2022Q2

REPORT INFORMATION
  Report Type: Spontaneous
  Country: US (occurrence: US)
  Receive Date: 20220511
  Receipt Date: 20220511
  Transmission Date: 20220721
  Serious: No
  Sender: FDA-Public Use
  Company Number: US-GLAUKOS-AVE-2021-0275-AE

PATIENT
  Age: 25 Year
  Sex: Male

DRUGS (2)
  1. RIBOFLAVIN 5^-PHOSPHATE SODIUM [Suspect]
     Active Substance: RIBOFLAVIN 5^-PHOSPHATE SODIUM
     Indication: Keratoconus
     Dosage: RIGHT EYE
     Route: 047
     Dates: start: 202106, end: 202106
  2. RIBOFLAVIN 5^-PHOSPHATE SODIUM [Suspect]
     Active Substance: RIBOFLAVIN 5^-PHOSPHATE SODIUM
     Indication: Keratoconus
     Dosage: LEFT EYE
     Route: 047
     Dates: start: 20210923, end: 20210923

REACTIONS (4)
  - Visual impairment [Not Recovered/Not Resolved]
  - Ocular discomfort [Unknown]
  - Ocular discomfort [Unknown]
  - Ocular discomfort [Unknown]
